FAERS Safety Report 14470557 (Version 1)
Quarter: 2018Q1

REPORT INFORMATION
  Report Type: Spontaneous
  Country: US (occurrence: US)
  Receive Date: 20180131
  Receipt Date: 20180131
  Transmission Date: 20180509
  Serious: Yes (Other)
  Sender: FDA-Public Use
  Company Number: US-PFIZER INC-2018040493

PATIENT
  Age: 23 Year
  Sex: Male
  Weight: 64 kg

DRUGS (1)
  1. CHANTIX [Suspect]
     Active Substance: VARENICLINE TARTRATE
     Indication: SMOKING CESSATION THERAPY
     Dosage: 1 MG, 1X/DAY
     Route: 048
     Dates: start: 2017

REACTIONS (7)
  - Suicidal ideation [Unknown]
  - Aggression [Unknown]
  - Mood swings [Unknown]
  - Feeling abnormal [Unknown]
  - Product use issue [Unknown]
  - Depression [Unknown]
  - Panic reaction [Unknown]
